FAERS Safety Report 24741226 (Version 1)
Quarter: 2024Q4

REPORT INFORMATION
  Report Type: Report from Study
  Country: US (occurrence: US)
  Receive Date: 20241217
  Receipt Date: 20241217
  Transmission Date: 20250115
  Serious: Yes (Other)
  Sender: ABBVIE
  Company Number: US-ABBVIE-6046312

PATIENT
  Age: 63 Year
  Sex: Female

DRUGS (1)
  1. RINVOQ [Suspect]
     Active Substance: UPADACITINIB
     Indication: Colitis ulcerative
     Dosage: STRENGTH- 15 MG
     Route: 048
     Dates: start: 202403

REACTIONS (2)
  - Retinal tear [Unknown]
  - Vitreous floaters [Unknown]

NARRATIVE: CASE EVENT DATE: 20241211
